FAERS Safety Report 8226754-4 (Version None)
Quarter: 2012Q1

REPORT INFORMATION
  Report Type: 
  Country: None (occurrence: None)
  Receive Date: 20120322
  Receipt Date: 20120312
  Transmission Date: 20120608
  Serious: Yes (Hospitalization, Other)
  Sender: FDA-Public Use
  Company Number: US-BAYER-2011-080614

PATIENT
  Sex: Female
  Weight: 79 kg

DRUGS (15)
  1. CYCLOBENZAPRINE HCL [Concomitant]
     Indication: MUSCLE RELAXANT THERAPY
     Dosage: UNK
  2. MELOXICAM [Concomitant]
     Indication: PAIN
     Dosage: UNK
  3. AZITHROMYCIN [Concomitant]
     Dosage: UNK
     Dates: start: 20090101
  4. SYNTHROID [Concomitant]
     Dosage: UNK
     Dates: start: 20000101
  5. FISH OIL [Concomitant]
     Dosage: UNK
     Dates: start: 20090514
  6. DROSPIRENONE AND ETHINYL ESTRADIOL [Suspect]
     Dosage: UNK
     Dates: start: 20080705, end: 20090413
  7. HYDROCHLOROTHIAZIDE [Concomitant]
     Dosage: UNK
     Dates: start: 20090615
  8. ADIPEX [Concomitant]
     Dosage: UNK
     Dates: start: 20090615
  9. DROSPIRENONE AND ETHINYL ESTRADIOL [Suspect]
     Dosage: UNK
     Dates: start: 20090507, end: 20090809
  10. HEPARIN [Concomitant]
     Dosage: UNK
     Dates: start: 20090101
  11. DARVOCET [Concomitant]
     Indication: PAIN
     Dosage: UNK
     Dates: start: 20070101, end: 20100101
  12. DIFLUCAN [Concomitant]
     Dosage: UNK
     Dates: start: 20090514
  13. SERTRALINE HYDROCHLORIDE [Concomitant]
     Indication: ANXIETY DISORDER
     Dosage: UNK
  14. PROPOXYPHENE HYDROCHLORIDE [Concomitant]
     Dosage: UNK
     Dates: start: 20090101, end: 20100101
  15. YASMIN [Suspect]
     Dosage: UNK
     Dates: start: 20030601, end: 20080601

REACTIONS (7)
  - EMOTIONAL DISTRESS [None]
  - GENERAL PHYSICAL HEALTH DETERIORATION [None]
  - CHOLELITHIASIS [None]
  - INJURY [None]
  - CHOLECYSTITIS CHRONIC [None]
  - PAIN [None]
  - ANXIETY [None]
